FAERS Safety Report 14249770 (Version 1)
Quarter: 2017Q4

REPORT INFORMATION
  Report Type: Spontaneous
  Country: US (occurrence: US)
  Receive Date: 20171204
  Receipt Date: 20171204
  Transmission Date: 20180321
  Serious: Yes (Other)
  Sender: FDA-Public Use
  Company Number: None

PATIENT
  Sex: Female
  Weight: 51.3 kg

DRUGS (1)
  1. MIDODRINE [Suspect]
     Active Substance: MIDODRINE
     Indication: POSTURAL ORTHOSTATIC TACHYCARDIA SYNDROME
     Dosage: ?          QUANTITY:1 TABLET(S);?
     Route: 048
     Dates: start: 20171129, end: 20171130

REACTIONS (5)
  - Weight decreased [None]
  - Psychomotor hyperactivity [None]
  - Palpitations [None]
  - Memory impairment [None]
  - Heart rate increased [None]

NARRATIVE: CASE EVENT DATE: 20171130
